FAERS Safety Report 5610268-1 (Version None)
Quarter: 2008Q1

REPORT INFORMATION
  Report Type: 
  Country: None (occurrence: None)
  Receive Date: 20080129
  Receipt Date: 20080123
  Transmission Date: 20080703
  Serious: Yes (Hospitalization)
  Sender: FDA-Public Use
  Company Number: TAP2007Q01647

PATIENT
  Age: 85 Year
  Sex: Male
  Weight: 73.63 kg

DRUGS (9)
  1. LUPRON DEPOT-4 [Suspect]
     Indication: PROSTATE CANCER
     Dosage: 30 MG, 1 IN 4 M, INTRAMUSCULAR
     Route: 030
     Dates: start: 20030101
  2. CLONIDINE [Concomitant]
  3. AMLODIPINE BESYLATE [Concomitant]
  4. TOPROL-XL [Concomitant]
  5. PAROXETINE HCL [Concomitant]
  6. HYTRIN [Concomitant]
  7. MECLIZINE [Concomitant]
  8. VITAMIN D [Concomitant]
  9. CALCIUM (CALCIUM) [Concomitant]

REACTIONS (8)
  - DRUG DISPENSING ERROR [None]
  - DYSARTHRIA [None]
  - GAIT DISTURBANCE [None]
  - MEDICATION ERROR [None]
  - MUSCULAR WEAKNESS [None]
  - MYALGIA [None]
  - SPEECH DISORDER [None]
  - WRONG DRUG ADMINISTERED [None]
